FAERS Safety Report 9141958 (Version 2)
Quarter: 2013Q2

REPORT INFORMATION
  Report Type: Spontaneous
  Country: US (occurrence: US)
  Receive Date: 20130305
  Receipt Date: 20130404
  Transmission Date: 20140414
  Serious: No
  Sender: FDA-Public Use
  Company Number: US-AMGEN-USASP2013011914

PATIENT
  Age: 53 Year
  Sex: Female
  Weight: 118.37 kg

DRUGS (16)
  1. ENBREL [Suspect]
     Indication: RHEUMATOID ARTHRITIS
     Dosage: 50 MG, QWK
     Route: 058
     Dates: start: 20121206, end: 20130207
  2. PERCOCET                           /00867901/ [Concomitant]
     Indication: PAIN
     Dosage: UNK, 5-325 MG PER TABLET
     Route: 048
  3. METHOTREXATE [Concomitant]
     Dosage: 2.5 MG, 6 TABS ONCE WEEKLY
  4. ZOLOFT [Concomitant]
     Dosage: 100 MG, QD
     Route: 048
  5. CALCIUM 600 + D [Concomitant]
     Dosage: 400 UNIT, QD
     Route: 048
  6. POTASSIUM [Concomitant]
     Dosage: 99 MG, QD
     Route: 048
  7. VITAMIN D3 [Concomitant]
     Dosage: 400 UNIT, QD
     Route: 048
  8. CENTRUM SILVER                     /07431401/ [Concomitant]
     Dosage: 1 DF, QD
     Route: 048
  9. VIMOVO [Concomitant]
     Dosage: 500-20 MG, BID
     Route: 048
  10. IRON                               /00023503/ [Concomitant]
     Dosage: 325 MG, QD
     Route: 048
  11. DYAZIDE [Concomitant]
     Dosage: UNK, 37.5-25 MG PER CAPSULE, 1 CAP BY MOUTH ONCE DAILY.
     Route: 048
  12. KENALOG [Concomitant]
     Dosage: UNK, 0.1 % CREAM, APPLY TOPICALLY THREE TIMES DAILY.
  13. FOLVITE                            /00024201/ [Concomitant]
     Dosage: 1 MG, QD
     Route: 048
  14. VENTOLIN HFA [Concomitant]
     Dosage: 90 MUG, 2 PUFF Q 4 HR PRN
  15. ASPIRIN [Concomitant]
     Dosage: 81 MG, QD
     Route: 048
  16. MECLIZINE                          /00072801/ [Concomitant]
     Dosage: 25 MG, 1 PO Q 6 HR PRN.
     Route: 048

REACTIONS (4)
  - Urticaria [Recovering/Resolving]
  - Pruritus generalised [Recovered/Resolved]
  - Sleep disorder due to general medical condition, insomnia type [Recovered/Resolved]
  - Temperature intolerance [Recovering/Resolving]
